FAERS Safety Report 12854600 (Version 1)
Quarter: 2016Q4

REPORT INFORMATION
  Report Type: Spontaneous
  Country: US (occurrence: US)
  Receive Date: 20161017
  Receipt Date: 20161017
  Transmission Date: 20170207
  Serious: No
  Sender: FDA-Public Use
  Company Number: US-DRREDDYS-USA/USA/15/0054172

PATIENT
  Sex: Female
  Weight: 95.2 kg

DRUGS (1)
  1. CLODERM [Suspect]
     Active Substance: CLOCORTOLONE PIVALATE
     Indication: ROSACEA
     Route: 061
     Dates: start: 20151116

REACTIONS (2)
  - Exposure during pregnancy [Unknown]
  - No adverse event [Unknown]
